FAERS Safety Report 24197570 (Version 1)
Quarter: 2024Q3

REPORT INFORMATION
  Report Type: Spontaneous
  Country: US (occurrence: US)
  Receive Date: 20240811
  Receipt Date: 20240811
  Transmission Date: 20241017
  Serious: No
  Sender: ROCHE
  Company Number: US-ROCHE-10000052643

PATIENT
  Age: 66 Year
  Sex: Female

DRUGS (1)
  1. RITUXAN [Suspect]
     Active Substance: RITUXIMAB
     Indication: Immunoglobulin G4 related disease
     Dosage: RITUXAN SDV 500MG/50ML, FREQUENCY: ON DAY 0 AND DAY 14
     Route: 042

REACTIONS (2)
  - Off label use [Unknown]
  - No adverse event [Unknown]
